FAERS Safety Report 8503823-2 (Version None)
Quarter: 2012Q3

REPORT INFORMATION
  Report Type: 
  Country: None (occurrence: None)
  Receive Date: 20120711
  Receipt Date: 20120629
  Transmission Date: 20120928
  Serious: Yes (Other)
  Sender: FDA-Public Use
  Company Number: US-JNJFOC-20120700556

PATIENT
  Sex: Female
  Weight: 58.06 kg

DRUGS (7)
  1. IMITREX [Concomitant]
     Indication: MIGRAINE
     Route: 058
  2. REMICADE [Suspect]
     Indication: CROHN'S DISEASE
     Route: 042
     Dates: end: 20111101
  3. REMICADE [Suspect]
     Route: 042
     Dates: start: 20111101
  4. VICODIN [Concomitant]
     Indication: PAIN
     Route: 065
  5. TOPAMAX [Concomitant]
     Indication: MIGRAINE
     Route: 048
  6. ZANAFLEX [Concomitant]
     Indication: PAIN
     Route: 065
  7. CALCIUM [Concomitant]
     Route: 065

REACTIONS (5)
  - CROHN'S DISEASE [None]
  - MYALGIA [None]
  - VIRAL INFECTION [None]
  - PAINFUL RESPIRATION [None]
  - ARTHRALGIA [None]
